FAERS Safety Report 10405124 (Version 1)
Quarter: 2014Q3

REPORT INFORMATION
  Report Type: Spontaneous
  Country: US (occurrence: None)
  Receive Date: 20140819
  Receipt Date: 20140819
  Transmission Date: 20150326
  Serious: Yes (Disabling)
  Sender: FDA-Public Use
  Company Number: None

PATIENT
  Age: 62 Year
  Sex: Male
  Weight: 113.4 kg

DRUGS (14)
  1. BICALUTAMIDE TEVA [Suspect]
     Active Substance: BICALUTAMIDE
     Indication: PROSTATIC DISORDER
     Dosage: 1 PILL DAILY BY MOUTH
  2. DICLOFENAC [Concomitant]
     Active Substance: DICLOFENAC
  3. DULERA [Concomitant]
     Active Substance: FORMOTEROL FUMARATE DIHYDRATE\MOMETASONE FUROATE
  4. JANUVIA [Concomitant]
     Active Substance: SITAGLIPTIN PHOSPHATE
  5. IRON [Concomitant]
     Active Substance: IRON
  6. METFORMIN [Concomitant]
     Active Substance: METFORMIN HYDROCHLORIDE
  7. PROAIR HFA [Concomitant]
     Active Substance: ALBUTEROL SULFATE
  8. AMLODIPINE [Concomitant]
     Active Substance: AMLODIPINE BESYLATE
  9. ATORVASTATIN [Concomitant]
     Active Substance: ATORVASTATIN
  10. ONE A DAY [Concomitant]
  11. VITAMIN D3 [Concomitant]
     Active Substance: CHOLECALCIFEROL
  12. LISINOPRIL. [Concomitant]
     Active Substance: LISINOPRIL
  13. FISH OIL [Concomitant]
     Active Substance: FISH OIL
  14. GE  OXYBUTYNIN [Concomitant]

REACTIONS (2)
  - Breast swelling [None]
  - Breast pain [None]

NARRATIVE: CASE EVENT DATE: 20121017
